FAERS Safety Report 18102287 (Version 2)
Quarter: 2021Q2

REPORT INFORMATION
  Report Type: Spontaneous
  Country: US (occurrence: US)
  Receive Date: 20200803
  Receipt Date: 20210503
  Transmission Date: 20210717
  Serious: Yes (Other)
  Sender: FDA-Public Use
  Company Number: US-SA-2020SA198296

PATIENT
  Age: 57 Year
  Sex: Male

DRUGS (1)
  1. ZANTAC [Suspect]
     Active Substance: RANITIDINE HYDROCHLORIDE
     Indication: DYSPEPSIA
     Dosage: 150 MG, QD
     Dates: start: 199501, end: 201901

REACTIONS (3)
  - Brain cancer metastatic [Unknown]
  - Lung carcinoma cell type unspecified stage III [Unknown]
  - Head and neck cancer stage III [Unknown]

NARRATIVE: CASE EVENT DATE: 20190401
